FAERS Safety Report 24789673 (Version 1)
Quarter: 2024Q4

REPORT INFORMATION
  Report Type: Spontaneous
  Country: GB (occurrence: GB)
  Receive Date: 20241230
  Receipt Date: 20241230
  Transmission Date: 20250115
  Serious: Yes (Other)
  Sender: TEVA
  Company Number: GB-MHRA-TPP43315119C9991352YC1734686121373

PATIENT
  Age: 75 Year
  Sex: Male
  Weight: 79 kg

DRUGS (9)
  1. TAMSULOSIN [Suspect]
     Active Substance: TAMSULOSIN
     Indication: Ill-defined disorder
     Dosage: MODIFIED-RELEASE CAPSULES
     Route: 065
     Dates: start: 20241220
  2. MACROGOL COMPOUND [Concomitant]
     Indication: Ill-defined disorder
     Dosage: TAKE ONE SACHET TWICE A DAY
     Dates: start: 20240910
  3. BETAMETHASONE VALERATE [Concomitant]
     Active Substance: BETAMETHASONE VALERATE
     Indication: Ill-defined disorder
     Dosage: APPLY TWICE A DAY
     Dates: start: 20240910
  4. ROSUVASTATIN [Concomitant]
     Active Substance: ROSUVASTATIN
     Indication: Ill-defined disorder
     Dates: start: 20240910
  5. AMLODIPINE [Concomitant]
     Active Substance: AMLODIPINE BESYLATE
     Indication: Ill-defined disorder
     Dates: start: 20240910
  6. TAMSULOSIN [Suspect]
     Active Substance: TAMSULOSIN
     Indication: Ill-defined disorder
     Route: 065
     Dates: start: 20241101, end: 20241220
  7. RAMIPRIL [Concomitant]
     Active Substance: RAMIPRIL
     Indication: Ill-defined disorder
     Dates: start: 20240910
  8. SILDENAFIL [Concomitant]
     Active Substance: SILDENAFIL
     Indication: Ill-defined disorder
     Dosage: TAKE ABOUT 1 HOUR BEFORE SEXUAL ACTIVITY
     Dates: start: 20240910
  9. IBUPROFEN [Concomitant]
     Active Substance: IBUPROFEN
     Indication: Ill-defined disorder
     Dosage: APPLY THREE TIMES A DAY TO THE AFFECTED AREA(S)
     Dates: start: 20240910

REACTIONS (1)
  - Rash pruritic [Recovering/Resolving]

NARRATIVE: CASE EVENT DATE: 20241103
